FAERS Safety Report 4365340-3 (Version None)
Quarter: 2004Q2

REPORT INFORMATION
  Report Type: 
  Country: None (occurrence: None)
  Receive Date: 20040520
  Receipt Date: 20040507
  Transmission Date: 20050107
  Serious: Yes (Death)
  Sender: FDA-Public Use
  Company Number: MK200405-0112-1

PATIENT
  Age: 42 Year
  Sex: Male

DRUGS (1)
  1. METHADOSE [Suspect]
     Dates: start: 20030615

REACTIONS (1)
  - ACCIDENT [None]
